FAERS Safety Report 15559568 (Version 1)
Quarter: 2018Q4

REPORT INFORMATION
  Report Type: Spontaneous
  Country: US (occurrence: US)
  Receive Date: 20181029
  Receipt Date: 20181029
  Transmission Date: 20190205
  Serious: No
  Sender: FDA-Public Use
  Company Number: US-TEVA-2018-US-967152

PATIENT
  Sex: Male

DRUGS (1)
  1. TESTOSTERONE. [Suspect]
     Active Substance: TESTOSTERONE
     Dosage: 5 PUMP PER DAY, STRENGTH: 30 MG / 1.5 ML
     Route: 061

REACTIONS (3)
  - Device issue [Unknown]
  - Product physical issue [Unknown]
  - Application site erythema [Unknown]
